FAERS Safety Report 8240549-7 (Version None)
Quarter: 2012Q1

REPORT INFORMATION
  Report Type: 
  Country: None (occurrence: None)
  Receive Date: 20120328
  Receipt Date: 20120327
  Transmission Date: 20120608
  Serious: Yes (Other)
  Sender: FDA-Public Use
  Company Number: US-BAYER-2012-029999

PATIENT
  Age: 52 Year
  Sex: Female

DRUGS (4)
  1. INTERFERON BETA-1B [Suspect]
     Indication: RELAPSING-REMITTING MULTIPLE SCLEROSIS
     Dosage: UNK
     Dates: start: 19940503, end: 20041219
  2. INTERFERON BETA-1B [Suspect]
     Dosage: 8 MIU, QOD
     Route: 058
     Dates: start: 20120326
  3. INTERFERON BETA-1B [Suspect]
     Dosage: UNK
     Dates: start: 20050223, end: 20071202
  4. INTERFERON BETA-1B [Suspect]
     Dosage: UNK
     Dates: start: 20080115, end: 20120210

REACTIONS (1)
  - ABSCESS [None]
